FAERS Safety Report 8277929 (Version 4)
Quarter: 2012Q4

REPORT INFORMATION
  Report Type: Report from Study
  Country: BR (occurrence: BR)
  Receive Date: 20111207
  Receipt Date: 20121108
  Transmission Date: 20130627
  Serious: Yes (Death)
  Sender: FDA-Public Use
  Company Number: BR-ROCHE-1015703

PATIENT
  Age: 50 Year
  Sex: Female
  Weight: 77 kg

DRUGS (10)
  1. TRASTUZUMAB [Suspect]
     Indication: BREAST CANCER METASTATIC
     Dosage: dose of last trastuzumab taken: 462 mg, 07 NOV 2011
     Route: 042
     Dates: start: 20110926
  2. DOCETAXEL [Suspect]
     Indication: BREAST CANCER METASTATIC
     Dosage: dose of last docetaxel taken : 138.3 mg on 07 Nov 2011
     Route: 042
     Dates: start: 20110926
  3. DEXAMETHASONE [Concomitant]
     Indication: PREMEDICATION
     Route: 065
     Dates: start: 20110926, end: 20111107
  4. ONDANSETRON [Concomitant]
     Indication: PREMEDICATION
     Route: 065
     Dates: start: 20110926, end: 20111107
  5. DIPHENHYDRAMINE [Concomitant]
     Indication: PREMEDICATION
     Route: 065
     Dates: start: 20110926, end: 20111107
  6. RANITIDINE [Concomitant]
     Route: 065
     Dates: start: 20110926, end: 20111107
  7. NOREPINEPHRINE [Concomitant]
     Route: 065
     Dates: start: 201111, end: 201111
  8. OMEPRAZOLE [Concomitant]
     Indication: PROPHYLAXIS
     Route: 065
     Dates: start: 200106
  9. IBUPROFEN [Concomitant]
     Indication: BACK PAIN
     Route: 065
     Dates: start: 20111013, end: 20111023
  10. BEROTEC [Concomitant]
     Indication: PNEUMONIA
     Route: 065
     Dates: start: 201111, end: 201111

REACTIONS (2)
  - Septic shock [Fatal]
  - Pneumonia [Fatal]
